FAERS Safety Report 4978950-7 (Version None)
Quarter: 2006Q2

REPORT INFORMATION
  Report Type: 
  Country: None (occurrence: None)
  Receive Date: 20060419
  Receipt Date: 20060419
  Transmission Date: 20061013
  Serious: Yes (Life-Threatening, Hospitalization, Other)
  Sender: FDA-Public Use
  Company Number: None

PATIENT
  Age: 54 Year
  Sex: Male
  Weight: 77.1 kg

DRUGS (10)
  1. RIBAVIRIN [Suspect]
     Indication: HEPATITIS C
     Dosage: 600 MG PO BID; 400 MG AM AND 600 MG PM
     Route: 048
     Dates: start: 20050902, end: 20060124
  2. RIBAVIRIN [Suspect]
     Indication: HEPATITIS C
     Dosage: 600 MG PO BID; 400 MG AM AND 600 MG PM
     Route: 048
     Dates: start: 20060124, end: 20060228
  3. PEGINTERFERON [Concomitant]
  4. XANAX [Concomitant]
  5. BACLOFEN [Concomitant]
  6. DOXEPIN HCL [Concomitant]
  7. LORATADINE [Concomitant]
  8. TRAMADOL HCL [Concomitant]
  9. LISINOPRIL [Concomitant]
  10. EPOGEN [Concomitant]

REACTIONS (5)
  - ANAEMIA [None]
  - DIZZINESS [None]
  - DYSPNOEA EXERTIONAL [None]
  - FATIGUE [None]
  - NAUSEA [None]
